FAERS Safety Report 7524462-6 (Version None)
Quarter: 2011Q2

REPORT INFORMATION
  Report Type: 
  Country: None (occurrence: None)
  Receive Date: 20110606
  Receipt Date: 20110525
  Transmission Date: 20111010
  Serious: Yes (Other)
  Sender: FDA-Public Use
  Company Number: US-JNJFOC-20110511801

PATIENT
  Sex: Female
  Weight: 53.52 kg

DRUGS (2)
  1. LEXAPRO [Concomitant]
     Indication: DEPRESSION
     Route: 048
  2. TOPAMAX [Suspect]
     Indication: MIGRAINE
     Route: 048
     Dates: start: 20020101

REACTIONS (5)
  - AMNESIA [None]
  - BACK PAIN [None]
  - CATARACT [None]
  - BLINDNESS [None]
  - ARTHRALGIA [None]
